FAERS Safety Report 4811053-0 (Version None)
Quarter: 2005Q4

REPORT INFORMATION
  Report Type: 
  Country: None (occurrence: None)
  Receive Date: 20051025
  Receipt Date: 20051015
  Transmission Date: 20060501
  Serious: Yes (Hospitalization, Other)
  Sender: FDA-Public Use
  Company Number: 2005136072

PATIENT
  Age: 74 Year
  Sex: Male

DRUGS (3)
  1. MACUGEN [Suspect]
     Indication: ILL-DEFINED DISORDER
     Dosage: INTRAOCULAR
     Route: 031
     Dates: start: 20050901, end: 20050901
  2. THEOPHYLLINE [Suspect]
     Indication: ILL-DEFINED DISORDER
  3. LIDOCAINE HCL INJ [Suspect]
     Indication: ILL-DEFINED DISORDER

REACTIONS (3)
  - ANAPHYLACTIC SHOCK [None]
  - DRUG HYPERSENSITIVITY [None]
  - POST PROCEDURAL COMPLICATION [None]
